FAERS Safety Report 13575576 (Version 1)
Quarter: 2017Q2

REPORT INFORMATION
  Report Type: Spontaneous
  Country: CO (occurrence: CO)
  Receive Date: 20170524
  Receipt Date: 20170524
  Transmission Date: 20170830
  Serious: Yes (Hospitalization, Other)
  Sender: FDA-Public Use
  Company Number: CO-SUN PHARMACEUTICAL INDUSTRIES LTD-2017RR-140910

PATIENT
  Age: 13 Year
  Sex: Male

DRUGS (1)
  1. ISOTRETINOIN [Suspect]
     Active Substance: ISOTRETINOIN
     Indication: ACNE
     Dosage: 20 MG, DAILY
     Route: 065

REACTIONS (9)
  - Psychotic behaviour [Recovered/Resolved]
  - Irritability [Recovered/Resolved]
  - Social avoidant behaviour [Recovered/Resolved]
  - Delusion [Recovered/Resolved]
  - Decreased appetite [Recovered/Resolved]
  - Akathisia [Recovered/Resolved]
  - Initial insomnia [Recovered/Resolved]
  - Hallucination, auditory [Recovered/Resolved]
  - Suspiciousness [Recovered/Resolved]
